FAERS Safety Report 9738489 (Version 1)
Quarter: 2013Q4

REPORT INFORMATION
  Report Type: Spontaneous
  Country: MX (occurrence: MX)
  Receive Date: 20131208
  Receipt Date: 20131208
  Transmission Date: 20140711
  Serious: Yes (Other)
  Sender: FDA-Public Use
  Company Number: MX-ROCHE-1310348

PATIENT
  Age: 46 Year
  Sex: 0

DRUGS (7)
  1. AVASTIN [Suspect]
     Indication: PRODUCT USED FOR UNKNOWN INDICATION
     Route: 065
     Dates: start: 20090310, end: 20090910
  2. AVASTIN [Suspect]
     Route: 065
     Dates: start: 20101027
  3. CARBOPLATIN [Concomitant]
     Indication: BREAST CANCER METASTATIC
     Route: 065
     Dates: start: 20090310, end: 20090910
  4. DOCETAXEL [Concomitant]
     Route: 065
     Dates: start: 20090310, end: 20090910
  5. DOCETAXEL [Concomitant]
     Route: 065
     Dates: start: 20101027
  6. ZOMETA [Concomitant]
     Route: 065
     Dates: start: 20100129
  7. CYCLOPHOSPHAMIDE [Concomitant]
     Route: 065
     Dates: start: 20101027

REACTIONS (1)
  - Toxicity to various agents [Unknown]
